FAERS Safety Report 15451427 (Version 3)
Quarter: 2018Q4

REPORT INFORMATION
  Report Type: Spontaneous
  Country: SK (occurrence: SK)
  Receive Date: 20181001
  Receipt Date: 20181019
  Transmission Date: 20190204
  Serious: Yes (Congenital Anomaly, Other)
  Sender: FDA-Public Use
  Company Number: PHHY2018SK109781

PATIENT
  Age: 53 Year
  Sex: Female

DRUGS (9)
  1. ACITRETIN. [Suspect]
     Active Substance: ACITRETIN
     Dosage: 25 MG, UNK
     Route: 065
  2. ADALIMUMAB [Suspect]
     Active Substance: ADALIMUMAB
     Dosage: FIRST DOSE 160 MG
     Route: 058
  3. ADALIMUMAB [Suspect]
     Active Substance: ADALIMUMAB
     Indication: PRODUCT USED FOR UNKNOWN INDICATION
     Dosage: SINCE 29TH DAY 40 MG ONCE PER WEEK
     Route: 058
  4. ADALIMUMAB [Suspect]
     Active Substance: ADALIMUMAB
     Dosage: SECOND WEEK 80 MG
     Route: 058
  5. ACITRETIN. [Suspect]
     Active Substance: ACITRETIN
     Indication: PRODUCT USED FOR UNKNOWN INDICATION
     Route: 065
  6. MEDROL [Suspect]
     Active Substance: METHYLPREDNISOLONE
     Indication: PRODUCT USED FOR UNKNOWN INDICATION
     Dosage: 8 MG, QD
     Route: 065
  7. CICLOSPORIN [Suspect]
     Active Substance: CYCLOSPORINE
     Dosage: 100-0-125 MG DAILY
     Route: 065
  8. DAPSONE. [Suspect]
     Active Substance: DAPSONE
     Indication: PRODUCT USED FOR UNKNOWN INDICATION
     Dosage: 150 MG PER 6 DAYES IN A WEEK
     Route: 065
  9. CLINDAMYCIN. [Suspect]
     Active Substance: CLINDAMYCIN
     Indication: PRODUCT USED FOR UNKNOWN INDICATION
     Route: 051

REACTIONS (9)
  - Type IIb hyperlipidaemia [Unknown]
  - Pancreatic disorder [Unknown]
  - Lymphadenopathy [Unknown]
  - Renal cyst [Unknown]
  - Product use in unapproved indication [Unknown]
  - Mastitis [Unknown]
  - Anaemia [Unknown]
  - Off label use [Unknown]
  - Dyspepsia [Unknown]
